FAERS Safety Report 19504731 (Version 2)
Quarter: 2021Q3

REPORT INFORMATION
  Report Type: Spontaneous
  Country: JP (occurrence: JP)
  Receive Date: 20210707
  Receipt Date: 20210729
  Transmission Date: 20211014
  Serious: Yes (Other)
  Sender: FDA-Public Use
  Company Number: JP-CELGENEUS-JPN-20210700419

PATIENT
  Sex: Male

DRUGS (2)
  1. POMALYST [Suspect]
     Active Substance: POMALIDOMIDE
     Indication: PLASMA CELL MYELOMA
     Dosage: UNKNOWN
     Route: 048
  2. POMALYST [Suspect]
     Active Substance: POMALIDOMIDE
     Dosage: 3 MILLIGRAM
     Route: 048

REACTIONS (5)
  - Atrial enlargement [Recovered/Resolved]
  - Electrocardiogram ST-T change [Recovered/Resolved]
  - Left ventricular hypertrophy [Recovered/Resolved]
  - Left atrial enlargement [Recovered/Resolved]
  - Palpitations [Recovered/Resolved]
